FAERS Safety Report 14479932 (Version 1)
Quarter: 2018Q1

REPORT INFORMATION
  Report Type: Spontaneous
  Country: US (occurrence: US)
  Receive Date: 20180201
  Receipt Date: 20180201
  Transmission Date: 20180509
  Serious: Yes (Hospitalization)
  Sender: FDA-Public Use
  Company Number: None

PATIENT
  Age: 77 Year
  Sex: Female

DRUGS (2)
  1. CYCLOPHOSPHAMIDE. [Suspect]
     Active Substance: CYCLOPHOSPHAMIDE
  2. DOXORUBICIN [Suspect]
     Active Substance: DOXORUBICIN

REACTIONS (3)
  - Clostridium test positive [None]
  - Febrile neutropenia [None]
  - Diarrhoea [None]
